FAERS Safety Report 8564085-3 (Version None)
Quarter: 2012Q3

REPORT INFORMATION
  Report Type: 
  Country: None (occurrence: None)
  Receive Date: 20120803
  Receipt Date: 20120725
  Transmission Date: 20120928
  Serious: Yes (Hospitalization)
  Sender: FDA-Public Use
  Company Number: US-BAYER-2011-066448

PATIENT
  Age: 44 Year
  Sex: Female
  Weight: 72.562 kg

DRUGS (9)
  1. YAZ [Suspect]
     Indication: PREMENSTRUAL SYNDROME
  2. XYZAL [Concomitant]
     Indication: HYPERSENSITIVITY
     Dosage: 5 MG, UNK
     Route: 048
     Dates: start: 20080501, end: 20100301
  3. YASMIN [Suspect]
     Indication: PREMENSTRUAL SYNDROME
  4. NASONEX [Concomitant]
     Indication: MULTIPLE ALLERGIES
     Dosage: 50 UNK, UNK
     Dates: start: 20090901, end: 20091101
  5. OMNICEF [Concomitant]
     Dosage: 300 MG, UNK
     Route: 048
  6. YASMIN [Suspect]
     Indication: CONTRACEPTION
     Dosage: UNK
     Dates: start: 20041001, end: 20041201
  7. NEXIUM [Concomitant]
     Indication: GASTROOESOPHAGEAL REFLUX DISEASE
     Dosage: 40 MG, UNK
     Route: 048
     Dates: start: 20080501
  8. NAPROXEN (ALEVE) [Concomitant]
  9. YAZ [Suspect]
     Indication: CONTRACEPTION
     Dosage: UNK
     Dates: start: 20080401, end: 20091101

REACTIONS (9)
  - ABDOMINAL PAIN UPPER [None]
  - ATELECTASIS [None]
  - PULMONARY EMBOLISM [None]
  - INJURY [None]
  - ANXIETY [None]
  - ANHEDONIA [None]
  - PULMONARY INFARCTION [None]
  - PLEURAL EFFUSION [None]
  - EMOTIONAL DISTRESS [None]
